FAERS Safety Report 5904037-2 (Version None)
Quarter: 2008Q3

REPORT INFORMATION
  Report Type: 
  Country: None (occurrence: None)
  Receive Date: 20080919
  Receipt Date: 20080728
  Transmission Date: 20090109
  Serious: No
  Sender: FDA-Public Use
  Company Number: US-WYE-H05286908

PATIENT
  Age: 56 Year
  Sex: Female
  Weight: 83.08 kg

DRUGS (8)
  1. PRISTIQ [Suspect]
     Indication: DEPRESSION
     Dosage: 50 MG 1X PER 1 DAY ORAL
     Route: 048
     Dates: start: 20080725
  2. MAXIDEX (BENZALKONIUM CHLORIDE/DEXAMETHASONE/PHENYLMERCURIC NITRATE) [Concomitant]
  3. PREMARIN [Concomitant]
  4. PRAVACHOL [Concomitant]
  5. AMBIEN [Concomitant]
  6. DETROL [Concomitant]
  7. DIOVAN [Concomitant]
  8. CALTRATE (CALCIUM CARBONATE) [Concomitant]

REACTIONS (3)
  - DIARRHOEA [None]
  - DIZZINESS [None]
  - HEADACHE [None]
